FAERS Safety Report 4351115-8 (Version None)
Quarter: 2004Q2

REPORT INFORMATION
  Report Type: 
  Country: None (occurrence: None)
  Receive Date: 20040430
  Receipt Date: 20030620
  Transmission Date: 20050107
  Serious: Yes (Hospitalization, Disabling)
  Sender: FDA-Public Use
  Company Number: US-MERCK-0306USA02640

PATIENT
  Age: 72 Year
  Sex: Male

DRUGS (4)
  1. LAC-HYDRIN 12% [Concomitant]
     Route: 061
     Dates: start: 19980507
  2. CUTIVATE [Concomitant]
     Route: 061
     Dates: start: 19980507
  3. ZOCOR [Suspect]
     Route: 048
     Dates: start: 19980511, end: 19990315
  4. ZOCOR [Suspect]
     Route: 048
     Dates: start: 19970404, end: 19980501

REACTIONS (22)
  - ASTHENIA [None]
  - BIOPSY MUSCLE ABNORMAL [None]
  - BODY TEMPERATURE INCREASED [None]
  - CERVICAL SPINAL STENOSIS [None]
  - COUGH [None]
  - CREATINE PHOSPHOKINASE DECREASED [None]
  - HAEMATOCRIT DECREASED [None]
  - HAEMOGLOBIN DECREASED [None]
  - HAEMORRHAGE [None]
  - HEAD INJURY [None]
  - LOSS OF CONSCIOUSNESS [None]
  - LUNG DISORDER [None]
  - MALAISE [None]
  - MUSCLE ATROPHY [None]
  - MYALGIA [None]
  - MYOPATHY [None]
  - NUCLEAR MAGNETIC RESONANCE IMAGING BRAIN ABNORMAL [None]
  - PO2 DECREASED [None]
  - RED BLOOD CELL SEDIMENTATION RATE INCREASED [None]
  - SENSATION OF BLOCK IN EAR [None]
  - VERTIGO POSITIONAL [None]
  - VIRAL INFECTION [None]
